FAERS Safety Report 18005466 (Version 1)
Quarter: 2020Q3

REPORT INFORMATION
  Report Type: Spontaneous
  Country: US (occurrence: US)
  Receive Date: 20200709
  Receipt Date: 20200709
  Transmission Date: 20201103
  Serious: No
  Sender: FDA-Public Use
  Company Number: None

PATIENT
  Age: 85 Year
  Sex: Female

DRUGS (3)
  1. CIPROFLOXACIN. [Suspect]
     Active Substance: CIPROFLOXACIN
     Indication: SURGERY
  2. GLIPIZIDE. [Concomitant]
     Active Substance: GLIPIZIDE
  3. PLAVIX [Concomitant]
     Active Substance: CLOPIDOGREL BISULFATE

REACTIONS (6)
  - Vertigo [None]
  - Anxiety [None]
  - Dizziness [None]
  - Dyspepsia [None]
  - Peripheral swelling [None]
  - Sneezing [None]

NARRATIVE: CASE EVENT DATE: 20200701
